FAERS Safety Report 13344707 (Version 1)
Quarter: 2017Q1

REPORT INFORMATION
  Report Type: Spontaneous
  Country: ES (occurrence: ES)
  Receive Date: 20170317
  Receipt Date: 20170317
  Transmission Date: 20170428
  Serious: No
  Sender: FDA-Public Use
  Company Number: ES-AUROBINDO-AUR-APL-2013-08111

PATIENT

DRUGS (4)
  1. LAMOTRIGINA AUROBINDO COMPRIMIDOS DISPERSABLES 5 MG [Suspect]
     Active Substance: LAMOTRIGINE
     Dosage: 75 MG,UNK,
     Route: 065
  2. KEPPRA [Concomitant]
     Active Substance: LEVETIRACETAM
     Indication: PETIT MAL EPILEPSY
     Dosage: UNK UNK,UNK,
     Route: 065
  3. LAMOTRIGINA AUROBINDO COMPRIMIDOS DISPERSABLES 5 MG [Suspect]
     Active Substance: LAMOTRIGINE
     Indication: PETIT MAL EPILEPSY
     Dosage: 25 MG,UNK,
     Route: 065
  4. LAMOTRIGINA AUROBINDO COMPRIMIDOS DISPERSABLES 5 MG [Suspect]
     Active Substance: LAMOTRIGINE
     Dosage: 50 MG,UNK,
     Route: 065

REACTIONS (7)
  - Tremor [Not Recovered/Not Resolved]
  - Arthralgia [Not Recovered/Not Resolved]
  - Musculoskeletal stiffness [Not Recovered/Not Resolved]
  - Headache [Not Recovered/Not Resolved]
  - Nausea [Not Recovered/Not Resolved]
  - Back pain [Not Recovered/Not Resolved]
  - Vomiting [Not Recovered/Not Resolved]
